FAERS Safety Report 7626825-7 (Version None)
Quarter: 2011Q3

REPORT INFORMATION
  Report Type: 
  Country: None (occurrence: None)
  Receive Date: 20110721
  Receipt Date: 20110711
  Transmission Date: 20111222
  Serious: Yes (Hospitalization, Other)
  Sender: FDA-Public Use
  Company Number: US-BAYER-201018547NA

PATIENT
  Age: 37 Year
  Sex: Female
  Weight: 109 kg

DRUGS (20)
  1. YAZ [Suspect]
     Indication: CONTRACEPTION
     Route: 048
     Dates: start: 20070901, end: 20080201
  2. ATENOLOL [Concomitant]
     Indication: HYPERTENSION
     Dates: start: 20060101
  3. ZOLOFT [Concomitant]
     Indication: UNEVALUABLE EVENT
     Dates: start: 20060101
  4. MUPIROCIN [Concomitant]
  5. GUAIFENESIN [Concomitant]
  6. MECLIZINE [Concomitant]
  7. LIPITOR [Concomitant]
     Indication: BLOOD CHOLESTEROL INCREASED
     Dates: start: 20060101
  8. ZYRTEC-D 12 HOUR [Concomitant]
     Indication: PRODUCT USED FOR UNKNOWN INDICATION
     Route: 048
     Dates: start: 20080201
  9. CETIRIZINE HYDROCHLORIDE + PSEUDOEPHEDRINE HYDROCHLORIDE [Concomitant]
  10. FLOUROMETHOLONE [Concomitant]
  11. ORTHO TRI-CYCLEN [Concomitant]
  12. EXCEDRIN (MIGRAINE) [Concomitant]
     Indication: HEADACHE
  13. EZETIMIBE [Concomitant]
  14. SIMVASTATIN [Concomitant]
  15. ORTHO TRI-CYCLEN [Concomitant]
  16. ASPIRIN [Concomitant]
  17. NAPROXEN [Concomitant]
  18. FLONASE [Concomitant]
     Indication: PRODUCT USED FOR UNKNOWN INDICATION
     Route: 045
  19. VIGAMOX [Concomitant]
  20. LISINOPRIL [Concomitant]

REACTIONS (7)
  - TRANSIENT ISCHAEMIC ATTACK [None]
  - HYPOAESTHESIA [None]
  - VERTIGO [None]
  - HEADACHE [None]
  - FACIAL PARESIS [None]
  - EYE PAIN [None]
  - PARAESTHESIA [None]
